FAERS Safety Report 12246740 (Version 1)
Quarter: 2016Q2

REPORT INFORMATION
  Report Type: Spontaneous
  Country: KR (occurrence: KR)
  Receive Date: 20160407
  Receipt Date: 20160407
  Transmission Date: 20160815
  Serious: Yes (Other)
  Sender: FDA-Public Use
  Company Number: KR-MYLANLABS-2016M1014307

PATIENT

DRUGS (6)
  1. PACLITAXEL. [Suspect]
     Active Substance: PACLITAXEL
     Indication: METASTASES TO CENTRAL NERVOUS SYSTEM
     Dosage: WEEKLY
     Route: 065
  2. CAPECITABINE. [Suspect]
     Active Substance: CAPECITABINE
     Indication: METASTASES TO CENTRAL NERVOUS SYSTEM
     Dosage: 2,000 MG/M2 ON DAYS 1 THROUGH 14 OF A 21 DAY CYCLE
     Route: 065
     Dates: start: 201301
  3. DESMOPRESSIN [Concomitant]
     Active Substance: DESMOPRESSIN
     Indication: BREAST CANCER METASTATIC
     Route: 065
  4. PREDNISOLONE. [Concomitant]
     Active Substance: PREDNISOLONE
     Indication: BREAST CANCER METASTATIC
     Dosage: 7.5 MG A DAY IN DIVIDED DOSES EVERY MORNING AND AFTERNOON
     Route: 065
  5. LAPATINIB [Suspect]
     Active Substance: LAPATINIB
     Indication: METASTASES TO CENTRAL NERVOUS SYSTEM
     Dosage: 1,250MG DAILY
     Route: 065
     Dates: start: 201301
  6. LEVOTHYROXINE SODIUM. [Concomitant]
     Active Substance: LEVOTHYROXINE SODIUM
     Indication: BREAST CANCER METASTATIC
     Dosage: 75 MICROG A DAY
     Route: 065

REACTIONS (7)
  - Amnesia [Not Recovered/Not Resolved]
  - Gastrointestinal toxicity [Unknown]
  - Somnolence [Unknown]
  - Electrolyte imbalance [Unknown]
  - Asthenia [Unknown]
  - Septic shock [Unknown]
  - Nausea [Unknown]
